FAERS Safety Report 9902440 (Version 2)
Quarter: 2014Q3

REPORT INFORMATION
  Report Type: Spontaneous
  Country: US (occurrence: US)
  Receive Date: 20140217
  Receipt Date: 20140807
  Transmission Date: 20150326
  Serious: Yes (Hospitalization, Other)
  Sender: FDA-Public Use
  Company Number: US-009507513-1402USA007298

PATIENT
  Sex: Female

DRUGS (3)
  1. NUVARING [Suspect]
     Active Substance: ETHINYL ESTRADIOL\ETONOGESTREL
     Dosage: UNK
     Route: 067
     Dates: start: 20120104, end: 20120425
  2. MYCOPHENOLATE MOFETIL. [Concomitant]
     Active Substance: MYCOPHENOLATE MOFETIL
     Dosage: 500 MG, Q12H
     Dates: start: 2006
  3. RAPAMUNE [Concomitant]
     Active Substance: SIROLIMUS
     Dosage: 6 MG, QD
     Dates: start: 2006

REACTIONS (7)
  - Malaise [Unknown]
  - Renal failure chronic [Not Recovered/Not Resolved]
  - Deep vein thrombosis [Unknown]
  - Urinary tract infection [Unknown]
  - Iron deficiency anaemia [Unknown]
  - Renal failure acute [Unknown]
  - Hyperdynamic left ventricle [Unknown]

NARRATIVE: CASE EVENT DATE: 20120416
